FAERS Safety Report 5962042-4 (Version None)
Quarter: 2008Q4

REPORT INFORMATION
  Report Type: 
  Country: None (occurrence: None)
  Receive Date: 20081121
  Receipt Date: 20081111
  Transmission Date: 20090506
  Serious: Yes (Other)
  Sender: FDA-Public Use
  Company Number: PHHY2008JP28204

PATIENT
  Age: 88 Year
  Sex: Female

DRUGS (4)
  1. LOCHOL [Suspect]
     Indication: HYPERCHOLESTEROLAEMIA
     Dosage: 20 MG/DAY
     Dates: start: 20081111
  2. LOCHOL [Suspect]
     Dosage: 20 MG/DAY
     Route: 048
  3. NU-LOTAN [Concomitant]
     Dosage: 12.5 MG UNK
     Route: 048
  4. ASPIRIN [Concomitant]
     Indication: AORTIC VALVE STENOSIS
     Route: 048

REACTIONS (1)
  - BLOOD POTASSIUM INCREASED [None]
